FAERS Safety Report 14242922 (Version 1)
Quarter: 2017Q4

REPORT INFORMATION
  Report Type: Spontaneous
  Country: JP (occurrence: JP)
  Receive Date: 20171201
  Receipt Date: 20171201
  Transmission Date: 20180321
  Serious: Yes (Hospitalization, Other)
  Sender: FDA-Public Use
  Company Number: JP-HQ SPECIALTY-JP-2017INT000392

PATIENT
  Age: 23 Year
  Sex: Female

DRUGS (8)
  1. GIMERACIL [Suspect]
     Active Substance: GIMERACIL
     Indication: GASTRIC CANCER STAGE IV
     Dosage: 80 MG/M2, UNK
     Route: 065
  2. CISPLATIN. [Suspect]
     Active Substance: CISPLATIN
     Indication: METASTASES TO PERITONEUM
  3. OTERACIL [Suspect]
     Active Substance: OTERACIL
     Indication: GASTRIC CANCER STAGE IV
     Dosage: 80 MG/M2, UNK
     Route: 065
  4. GIMERACIL [Suspect]
     Active Substance: GIMERACIL
     Indication: METASTASES TO PERITONEUM
  5. TEGAFUR [Suspect]
     Active Substance: TEGAFUR
     Indication: GASTRIC CANCER STAGE IV
     Dosage: 80 MG/M2, UNK
     Route: 065
  6. CISPLATIN. [Suspect]
     Active Substance: CISPLATIN
     Indication: GASTRIC CANCER STAGE IV
     Dosage: 60 MG/M2, UNK
     Route: 065
  7. TEGAFUR [Suspect]
     Active Substance: TEGAFUR
     Indication: METASTASES TO PERITONEUM
  8. OTERACIL [Suspect]
     Active Substance: OTERACIL
     Indication: METASTASES TO PERITONEUM

REACTIONS (3)
  - Nausea [Recovered/Resolved]
  - Pulmonary embolism [Recovered/Resolved]
  - Deep vein thrombosis [Recovered/Resolved]
